FAERS Safety Report 4591470-7 (Version None)
Quarter: 2005Q1

REPORT INFORMATION
  Report Type: 
  Country: None (occurrence: None)
  Receive Date: 20050222
  Receipt Date: 20050214
  Transmission Date: 20050727
  Serious: Yes (Hospitalization)
  Sender: FDA-Public Use
  Company Number: 028-20785-05020273

PATIENT
  Age: 69 Year
  Sex: Male

DRUGS (16)
  1. THALOMID [Suspect]
     Indication: MULTIPLE MYELOMA
     Dosage: SEE IMAGE
     Route: 048
     Dates: start: 20030728, end: 20030901
  2. THALOMID [Suspect]
     Indication: MULTIPLE MYELOMA
     Dosage: SEE IMAGE
     Route: 048
     Dates: start: 20031001, end: 20050201
  3. THALOMID [Suspect]
     Indication: MULTIPLE MYELOMA
     Dosage: SEE IMAGE
     Route: 048
     Dates: start: 20050216
  4. THALOMID [Suspect]
  5. THALOMID [Suspect]
  6. THALOMID [Suspect]
  7. PAMIDROANTE (PAMIDRONATE) [Concomitant]
  8. DURAGESIC PATCH [Concomitant]
  9. HYDROMORPHONE HCL [Concomitant]
  10. SENOKOT-S (SENOKOT-S) [Concomitant]
  11. PANTOPRAZOLE SODIUM [Concomitant]
  12. MOTILIUM (DOMPERIDONE MALEATE) [Concomitant]
  13. CALCIUM (CALCIUM) [Concomitant]
  14. VITAMIN D [Concomitant]
  15. FOLIC ACID [Concomitant]
  16. VITAMIN B12 [Concomitant]

REACTIONS (5)
  - DYSPNOEA [None]
  - LUNG INFILTRATION [None]
  - PYREXIA [None]
  - TROPONIN INCREASED [None]
  - VIRAL MYOCARDITIS [None]
